FAERS Safety Report 5584358-6 (Version None)
Quarter: 2008Q1

REPORT INFORMATION
  Report Type: 
  Country: None (occurrence: None)
  Receive Date: 20080108
  Receipt Date: 20080103
  Transmission Date: 20080703
  Serious: Yes (Other)
  Sender: FDA-Public Use
  Company Number: US-JNJFOC-20071100099

PATIENT
  Sex: Female
  Weight: 73.03 kg

DRUGS (8)
  1. FENTANYL TRANSDERMAL SYSTEM [Suspect]
     Indication: PAIN
     Route: 062
  2. FENTANYL TRANSDERMAL SYSTEM [Suspect]
     Indication: KYPHOSIS
     Route: 062
  3. DURAGESIC-100 [Suspect]
  4. DURAGESIC-100 [Suspect]
     Indication: KYPHOSIS
  5. PROTONIX [Concomitant]
     Indication: DYSPEPSIA
     Route: 048
  6. CARDIZEM CD [Concomitant]
     Indication: BLOOD PRESSURE
     Route: 048
  7. METFORMIN HCL [Concomitant]
     Indication: DIABETES MELLITUS
     Route: 048
  8. KEPPRA [Concomitant]
     Indication: MIGRAINE
     Route: 048

REACTIONS (11)
  - APPLICATION SITE PRURITUS [None]
  - BLISTER [None]
  - BLOOD CHOLESTEROL INCREASED [None]
  - BLOOD PRESSURE INCREASED [None]
  - DERMATITIS CONTACT [None]
  - DIABETES MELLITUS [None]
  - DRUG INEFFECTIVE [None]
  - INSOMNIA [None]
  - MIGRAINE [None]
  - RASH [None]
  - VAGINAL HAEMORRHAGE [None]
